FAERS Safety Report 25276412 (Version 1)
Quarter: 2025Q2

REPORT INFORMATION
  Report Type: Spontaneous
  Country: US (occurrence: US)
  Receive Date: 20250507
  Receipt Date: 20250507
  Transmission Date: 20250716
  Serious: No
  Sender: OTSUKA
  Company Number: US-OTSUKA-2025_008400

PATIENT
  Age: 1 Month

DRUGS (1)
  1. ABILIFY ASIMTUFII [Suspect]
     Active Substance: ARIPIPRAZOLE
     Indication: Product used for unknown indication
     Route: 064

REACTIONS (2)
  - Tremor neonatal [Unknown]
  - Foetal exposure during pregnancy [Unknown]
